FAERS Safety Report 13880983 (Version 2)
Quarter: 2017Q4

REPORT INFORMATION
  Report Type: Report from Study
  Country: None (occurrence: US)
  Receive Date: 20170818
  Receipt Date: 20171030
  Transmission Date: 20180320
  Serious: Yes (Other)
  Sender: FDA-Public Use
  Company Number: US-ABBVIE-17K-163-1919599-00

PATIENT
  Sex: Female

DRUGS (1)
  1. HUMIRA [Suspect]
     Active Substance: ADALIMUMAB
     Indication: CROHN^S DISEASE
     Route: 058

REACTIONS (7)
  - Rash [Unknown]
  - Intestinal obstruction [Not Recovered/Not Resolved]
  - Pain [Unknown]
  - Skin papilloma [Unknown]
  - Melanocytic naevus [Unknown]
  - Pruritus [Unknown]
  - Acrochordon [Unknown]
